FAERS Safety Report 9813932 (Version 2)
Quarter: 2014Q1

REPORT INFORMATION
  Report Type: Spontaneous
  Country: TR (occurrence: TR)
  Receive Date: 20140113
  Receipt Date: 20140127
  Transmission Date: 20141002
  Serious: Yes (Death, Hospitalization)
  Sender: FDA-Public Use
  Company Number: TR-B.I. PHARMACEUTICALS,INC./RIDGEFIELD-2014-BI-01320TK

PATIENT
  Sex: Female
  Weight: 55 kg

DRUGS (2)
  1. PRADAXA [Suspect]
     Indication: CARDIAC FAILURE
     Dosage: 220 MG
     Route: 048
  2. PRADAXA [Suspect]
     Indication: CEREBROVASCULAR DISORDER

REACTIONS (1)
  - Lower gastrointestinal haemorrhage [Fatal]
